FAERS Safety Report 12839196 (Version 1)
Quarter: 2016Q4

REPORT INFORMATION
  Report Type: Spontaneous
  Country: US (occurrence: US)
  Receive Date: 20161011
  Receipt Date: 20161011
  Transmission Date: 20170207
  Serious: Yes (Hospitalization)
  Sender: FDA-Public Use
  Company Number: None

PATIENT
  Age: 26 Year
  Sex: Male

DRUGS (3)
  1. AFINITOR [Suspect]
     Active Substance: EVEROLIMUS
     Indication: IDIOPATHIC PARTIAL EPILEPSY
  2. AFINITOR [Suspect]
     Active Substance: EVEROLIMUS
     Indication: TUBEROUS SCLEROSIS
  3. AFINITOR [Suspect]
     Active Substance: EVEROLIMUS
     Indication: ANDROGEN INSENSITIVITY SYNDROME

REACTIONS (1)
  - Craniosynostosis [None]

NARRATIVE: CASE EVENT DATE: 20161011
